FAERS Safety Report 11776516 (Version 1)
Quarter: 2015Q4

REPORT INFORMATION
  Report Type: Spontaneous
  Country: US (occurrence: None)
  Receive Date: 20151123
  Receipt Date: 20151123
  Transmission Date: 20160304
  Serious: Yes (Hospitalization)
  Sender: FDA-Public Use
  Company Number: None

PATIENT
  Age: 51 Year
  Sex: Male
  Weight: 109.6 kg

DRUGS (1)
  1. TEMOZOLOMIDE. [Suspect]
     Active Substance: TEMOZOLOMIDE
     Dates: end: 20151113

REACTIONS (4)
  - Vomiting [None]
  - Abdominal pain [None]
  - Small intestinal obstruction [None]
  - Nausea [None]

NARRATIVE: CASE EVENT DATE: 20151116
